FAERS Safety Report 14187793 (Version 1)
Quarter: 2017Q4

REPORT INFORMATION
  Report Type: Spontaneous
  Country: US (occurrence: US)
  Receive Date: 20171114
  Receipt Date: 20171114
  Transmission Date: 20180321
  Serious: No
  Sender: FDA-Public Use
  Company Number: US-PFIZER INC-2017486155

PATIENT
  Sex: Female

DRUGS (3)
  1. NEURONTIN [Suspect]
     Active Substance: GABAPENTIN
     Dosage: 8 TIMES A DAY
  2. NEURONTIN [Suspect]
     Active Substance: GABAPENTIN
     Dosage: 4 TIMES A DAY
  3. NEURONTIN [Suspect]
     Active Substance: GABAPENTIN
     Dosage: 900MG AT NIGHT

REACTIONS (9)
  - Tremor [Unknown]
  - Agitation [Unknown]
  - Loss of personal independence in daily activities [Unknown]
  - Speech disorder [Unknown]
  - Weight decreased [Unknown]
  - Nausea [Unknown]
  - Feeling abnormal [Unknown]
  - Withdrawal syndrome [Unknown]
  - Muscle spasms [Unknown]
